FAERS Safety Report 10080594 (Version 1)
Quarter: 2014Q2

REPORT INFORMATION
  Report Type: Report from Study
  Country: US (occurrence: US)
  Receive Date: 20140416
  Receipt Date: 20140416
  Transmission Date: 20141212
  Serious: Yes (Death, Other)
  Sender: FDA-Public Use
  Company Number: US-BAYER-2014-054726

PATIENT
  Age: 83 Year
  Sex: Male

DRUGS (2)
  1. XOFIGO [Suspect]
     Indication: PROSTATE CANCER
     Dosage: UNK
     Dates: start: 20130925, end: 20130925
  2. XOFIGO [Suspect]
     Indication: PROSTATE CANCER
     Dosage: UNK
     Dates: start: 20131206, end: 20131206

REACTIONS (5)
  - Death [Fatal]
  - Gastrointestinal haemorrhage [None]
  - Haemoglobin decreased [None]
  - Platelet count decreased [None]
  - Prostate cancer [None]
